FAERS Safety Report 25283863 (Version 5)
Quarter: 2025Q4

REPORT INFORMATION
  Report Type: Spontaneous
  Country: US (occurrence: US)
  Receive Date: 20250508
  Receipt Date: 20251119
  Transmission Date: 20260117
  Serious: Yes (Hospitalization, Other)
  Sender: XERIS PHARMACEUTICALS
  Company Number: US-BRIAN CONNER SVP QUALITY AND CHIEF COMPLIANCE OFFICER-2025XER00122

PATIENT
  Sex: Male

DRUGS (2)
  1. RECORLEV [Suspect]
     Active Substance: LEVOKETOCONAZOLE
     Indication: Cushing^s syndrome
     Dosage: 150 MG, 2X/DAY
     Route: 048
     Dates: start: 2025, end: 2025
  2. RECORLEV [Suspect]
     Active Substance: LEVOKETOCONAZOLE
     Dosage: ONE TABLET (150 MG), 2X/DAY
     Route: 048
     Dates: start: 2025

REACTIONS (13)
  - Clavicle fracture [Unknown]
  - Fall [Unknown]
  - Humerus fracture [Recovering/Resolving]
  - Localised infection [Not Recovered/Not Resolved]
  - Blood glucose increased [Not Recovered/Not Resolved]
  - Renal failure [Not Recovered/Not Resolved]
  - Pulmonary oedema [Not Recovered/Not Resolved]
  - Nasopharyngitis [Not Recovered/Not Resolved]
  - Muscular weakness [Not Recovered/Not Resolved]
  - Blood glucose decreased [Recovering/Resolving]
  - Sneezing [Unknown]
  - Sensitivity to weather change [Unknown]
  - Blood pressure increased [Unknown]

NARRATIVE: CASE EVENT DATE: 20250101
